FAERS Safety Report 12211754 (Version 6)
Quarter: 2018Q3

REPORT INFORMATION
  Report Type: Spontaneous
  Country: FR (occurrence: FR)
  Receive Date: 20160325
  Receipt Date: 20180926
  Transmission Date: 20181010
  Serious: Yes (Hospitalization, Congenital Anomaly, Other)
  Sender: FDA-Public Use
  Company Number: FR-ABBVIE-16P-056-1592009-00

PATIENT
  Sex: Male

DRUGS (1)
  1. DEPAKINE CHRONO [Suspect]
     Active Substance: VALPROATE SODIUM
     Indication: MATERNAL EXPOSURE TIMING UNSPECIFIED
     Route: 064

REACTIONS (22)
  - Developmental delay [Not Recovered/Not Resolved]
  - Hypotonia [Unknown]
  - Disturbance in social behaviour [Unknown]
  - Foetal exposure during pregnancy [Unknown]
  - Dysmorphism [Not Recovered/Not Resolved]
  - Gastroenteritis Escherichia coli [Unknown]
  - Dysmorphism [Unknown]
  - Anxiety [Unknown]
  - Encopresis [Unknown]
  - Psychomotor retardation [Unknown]
  - Speech disorder developmental [Unknown]
  - Autism spectrum disorder [Not Recovered/Not Resolved]
  - Disturbance in attention [Not Recovered/Not Resolved]
  - Personality disorder [Unknown]
  - Affective disorder [Unknown]
  - Abnormal behaviour [Not Recovered/Not Resolved]
  - Upper respiratory tract infection [Unknown]
  - Learning disorder [Unknown]
  - Developmental delay [Unknown]
  - Communication disorder [Unknown]
  - Psychomotor hyperactivity [Not Recovered/Not Resolved]
  - Educational problem [Unknown]
